FAERS Safety Report 8046319-7 (Version None)
Quarter: 2012Q1

REPORT INFORMATION
  Report Type: 
  Country: None (occurrence: None)
  Receive Date: 20120113
  Receipt Date: 20120109
  Transmission Date: 20120608
  Serious: No
  Sender: FDA-Public Use
  Company Number: US-PFIZER INC-2012005038

PATIENT
  Sex: Female

DRUGS (3)
  1. SYNTHROID [Concomitant]
     Indication: THYROID DISORDER
     Dosage: 77 MG, DAILY
  2. PREMARIN [Suspect]
     Route: 067
  3. ESTRING [Suspect]
     Indication: OFF LABEL USE
     Dosage: UNK
     Route: 067
     Dates: start: 20120105

REACTIONS (5)
  - HOT FLUSH [None]
  - VULVOVAGINAL DRYNESS [None]
  - HEADACHE [None]
  - DRUG INEFFECTIVE [None]
  - FEELING ABNORMAL [None]
